FAERS Safety Report 17661418 (Version 1)
Quarter: 2020Q2

REPORT INFORMATION
  Report Type: Spontaneous
  Country: US (occurrence: US)
  Receive Date: 20200413
  Receipt Date: 20200413
  Transmission Date: 20200713
  Serious: No
  Sender: FDA-Public Use
  Company Number: None

PATIENT
  Weight: 50.4 kg

DRUGS (9)
  1. OXCARBAZEPINE. [Suspect]
     Active Substance: OXCARBAZEPINE
     Indication: AFFECTIVE DISORDER
     Dates: start: 20200203
  2. XULANE [Concomitant]
     Active Substance: ETHINYL ESTRADIOL\NORELGESTROMIN
  3. HYDROXYZINE [Concomitant]
     Active Substance: HYDROXYZINE HYDROCHLORIDE
  4. EXCEDRIN MIGRAINE [Concomitant]
     Active Substance: ACETAMINOPHEN\ASPIRIN\CAFFEINE
  5. BIOTIN [Concomitant]
     Active Substance: BIOTIN
  6. SUMATRIPTAN. [Concomitant]
     Active Substance: SUMATRIPTAN
  7. IRON [Concomitant]
     Active Substance: IRON
  8. COLLAGEN [Concomitant]
     Active Substance: COLLAGEN
  9. IBUPROFEN. [Concomitant]
     Active Substance: IBUPROFEN

REACTIONS (3)
  - Mental disorder [None]
  - Paraesthesia [None]
  - Euphoric mood [None]
